FAERS Safety Report 13673956 (Version 1)
Quarter: 2017Q2

REPORT INFORMATION
  Report Type: Spontaneous
  Country: US (occurrence: US)
  Receive Date: 20170621
  Receipt Date: 20170621
  Transmission Date: 20170830
  Serious: No
  Sender: FDA-Public Use
  Company Number: US-009507513-1705USA015978

PATIENT

DRUGS (6)
  1. GLIPIZIDE. [Concomitant]
     Active Substance: GLIPIZIDE
  2. HUMALOG [Concomitant]
     Active Substance: INSULIN LISPRO
  3. METFORMIN [Concomitant]
     Active Substance: METFORMIN HYDROCHLORIDE
  4. TIMOLOL MALEATE. [Concomitant]
     Active Substance: TIMOLOL MALEATE
  5. ZEPATIER [Suspect]
     Active Substance: ELBASVIR\GRAZOPREVIR
     Indication: HEPATITIS C
     Dosage: 1 TABLET EVERY DAY BY MOUTH,TOTAL DAILY DOSE 50-100MG
     Route: 048
  6. PRINIVIL [Concomitant]
     Active Substance: LISINOPRIL
     Route: 048

REACTIONS (1)
  - Adverse event [Unknown]
